FAERS Safety Report 20728844 (Version 1)
Quarter: 2022Q2

REPORT INFORMATION
  Report Type: Spontaneous
  Country: US (occurrence: US)
  Receive Date: 20220420
  Receipt Date: 20220420
  Transmission Date: 20220720
  Serious: Yes (Hospitalization, Other)
  Sender: FDA-Public Use
  Company Number: US-ALVOGEN-2022-ALVOGEN-119495

PATIENT
  Age: 50 Year
  Sex: Male

DRUGS (1)
  1. FLECAINIDE [Suspect]
     Active Substance: FLECAINIDE
     Indication: Atrial fibrillation

REACTIONS (16)
  - Suicide attempt [Unknown]
  - Electrocardiogram QT prolonged [Unknown]
  - Intentional overdose [Unknown]
  - Cardiac arrest [Unknown]
  - Bradycardia [Unknown]
  - Shock [Unknown]
  - Toxicity to various agents [Unknown]
  - Generalised tonic-clonic seizure [Unknown]
  - Bundle branch block right [Unknown]
  - Unresponsive to stimuli [Recovered/Resolved]
  - Mental status changes [Unknown]
  - Ventricular tachycardia [Unknown]
  - Atrioventricular block first degree [Unknown]
  - Anxiety [Unknown]
  - Agitation [Unknown]
  - Tremor [Unknown]
